FAERS Safety Report 5263727-8 (Version None)
Quarter: 2007Q1

REPORT INFORMATION
  Report Type: 
  Country: None (occurrence: None)
  Receive Date: 20061213
  Receipt Date: 20040623
  Transmission Date: 20070707
  Serious: Yes (Death)
  Sender: FDA-Public Use
  Company Number: 2004UW12962

PATIENT
  Age: 68 Year
  Sex: Female

DRUGS (2)
  1. IRESSA [Suspect]
     Indication: LUNG NEOPLASM MALIGNANT
  2. UNSPECIFIED [Concomitant]

REACTIONS (2)
  - DIARRHOEA [None]
  - DISEASE PROGRESSION [None]
